FAERS Safety Report 13618523 (Version 1)
Quarter: 2017Q2

REPORT INFORMATION
  Report Type: Spontaneous
  Country: PR (occurrence: US)
  Receive Date: 20170606
  Receipt Date: 20170606
  Transmission Date: 20170830
  Serious: Yes (Death, Hospitalization)
  Sender: FDA-Public Use
  Company Number: US-ALLERGAN-1709759US

PATIENT
  Age: 62 Year
  Sex: Female

DRUGS (1)
  1. AVYCAZ [Suspect]
     Active Substance: AVIBACTAM SODIUM\CEFTAZIDIME
     Indication: PSEUDOMONAS INFECTION
     Dosage: 2.5 G, Q8HR
     Route: 042
     Dates: start: 20170202, end: 20170227

REACTIONS (4)
  - Renal impairment [Not Recovered/Not Resolved]
  - Encephalopathy [Not Recovered/Not Resolved]
  - Acute kidney injury [Fatal]
  - Seizure [Unknown]

NARRATIVE: CASE EVENT DATE: 20170228
